FAERS Safety Report 10368490 (Version 4)
Quarter: 2014Q4

REPORT INFORMATION
  Report Type: Report from Study
  Country: US (occurrence: US)
  Receive Date: 20140807
  Receipt Date: 20141222
  Transmission Date: 20150528
  Serious: Yes (Hospitalization)
  Sender: FDA-Public Use
  Company Number: US-VERTEX PHARMACEUTICALS INC-2014-003372

PATIENT
  Age: 38 Year
  Sex: Male

DRUGS (16)
  1. MEPHYTON [Concomitant]
     Active Substance: PHYTONADIONE
     Indication: HAEMOPTYSIS
     Dosage: 5 MG, PRN
     Route: 048
     Dates: start: 2008
  2. MULTIVITAMIN [Concomitant]
     Active Substance: VITAMINS
     Indication: MALABSORPTION
     Dosage: 1 DF, QD
     Route: 048
     Dates: start: 2008
  3. MIRALAX [Concomitant]
     Active Substance: POLYETHYLENE GLYCOL 3350
     Indication: CONSTIPATION
     Dosage: 2 DF, PRN
     Route: 048
     Dates: start: 2008
  4. HYPERTONIC SALINE SOLUTION [Concomitant]
     Active Substance: SODIUM CHLORIDE
     Indication: CYSTIC FIBROSIS LUNG
     Dosage: 5 ML, BID
     Route: 055
     Dates: start: 2008
  5. VX-770 FDC [Suspect]
     Active Substance: IVACAFTOR
     Indication: CYSTIC FIBROSIS
     Dosage: 250 MG, Q12H
     Route: 048
     Dates: start: 20140128, end: 20140722
  6. TAMIFLU [Concomitant]
     Active Substance: OSELTAMIVIR PHOSPHATE
     Indication: INFLUENZA
     Dosage: 75 MG, PRN
     Route: 048
     Dates: start: 20131004
  7. ZITHROMAX [Concomitant]
     Active Substance: AZITHROMYCIN DIHYDRATE
     Indication: CYSTIC FIBROSIS LUNG
     Dosage: 250 MG, QD
     Route: 048
     Dates: start: 2008
  8. VITAMIN D [Concomitant]
     Active Substance: CHOLECALCIFEROL
     Indication: MALABSORPTION
     Dosage: 5000 IU, QD
     Route: 048
     Dates: start: 2008
  9. LANTUS [Concomitant]
     Active Substance: INSULIN GLARGINE
     Indication: CYSTIC FIBROSIS RELATED DIABETES
     Dosage: 20 IU, QD
     Route: 058
     Dates: start: 20120126
  10. TOBI [Concomitant]
     Active Substance: TOBRAMYCIN
     Indication: CYSTIC FIBROSIS LUNG
     Dosage: 300 MG, BID
     Route: 055
     Dates: start: 20140408, end: 20140512
  11. VX-809 FDC [Suspect]
     Active Substance: IVACAFTOR
     Indication: CYSTIC FIBROSIS
     Dosage: 400 MG, Q12H
     Route: 048
     Dates: start: 20140128, end: 20140722
  12. ACYCLOVIR. [Concomitant]
     Active Substance: ACYCLOVIR
     Indication: HERPES SIMPLEX
     Dosage: 400 MG, QOD
     Route: 048
     Dates: start: 2008
  13. CREON [Concomitant]
     Active Substance: PANCRELIPASE AMYLASE\PANCRELIPASE LIPASE\PANCRELIPASE PROTEASE
     Indication: PANCREATIC INSUFFICIENCY
     Dosage: 10 DF, W/MEALS
     Route: 048
     Dates: start: 2008
  14. XOPENEX [Concomitant]
     Active Substance: LEVALBUTEROL HYDROCHLORIDE
     Indication: CYSTIC FIBROSIS LUNG
     Dosage: 0.63 MG, BID
     Route: 055
     Dates: start: 2008
  15. CALCIUM CARBONATE. [Concomitant]
     Active Substance: CALCIUM CARBONATE
     Indication: MALABSORPTION
     Dosage: 1 DF, QD
     Route: 048
     Dates: start: 2008
  16. TOBI [Concomitant]
     Active Substance: TOBRAMYCIN
     Dosage: 300 MG, BID
     Route: 055
     Dates: start: 20140709

REACTIONS (1)
  - Depression [Recovered/Resolved]

NARRATIVE: CASE EVENT DATE: 20140804
